FAERS Safety Report 6554112-7 (Version None)
Quarter: 2010Q1

REPORT INFORMATION
  Report Type: 
  Country: None (occurrence: None)
  Receive Date: 20100125
  Receipt Date: 20100125
  Transmission Date: 20100710
  Serious: No
  Sender: FDA-Public Use
  Company Number: None

PATIENT
  Age: 41 Year
  Sex: Female
  Weight: 72.5755 kg

DRUGS (1)
  1. LYRICA [Suspect]
     Indication: NEURALGIA
     Dosage: 150MG BID PO
     Route: 048
     Dates: start: 20070601, end: 20090730

REACTIONS (5)
  - DERMAL CYST [None]
  - SCAR [None]
  - SKIN DISCOLOURATION [None]
  - SKIN SWELLING [None]
  - SKIN ULCER [None]
